FAERS Safety Report 23032114 (Version 3)
Quarter: 2025Q3

REPORT INFORMATION
  Report Type: Report from Study
  Country: US (occurrence: US)
  Receive Date: 20231005
  Receipt Date: 20250813
  Transmission Date: 20251021
  Serious: Yes (Other)
  Sender: TAKEDA
  Company Number: US-TAKEDA-2023TUS094698

PATIENT
  Sex: Female

DRUGS (1)
  1. BRIGATINIB [Suspect]
     Active Substance: BRIGATINIB
     Indication: Schwannoma
     Dosage: 180 MILLIGRAM, QD

REACTIONS (2)
  - Eyelid tumour [Unknown]
  - Abdominal discomfort [Recovering/Resolving]
